FAERS Safety Report 7828056-4 (Version None)
Quarter: 2011Q4

REPORT INFORMATION
  Report Type: 
  Country: None (occurrence: None)
  Receive Date: 20111020
  Receipt Date: 20111013
  Transmission Date: 20120403
  Serious: Yes (Hospitalization)
  Sender: FDA-Public Use
  Company Number: JP-GLAXOSMITHKLINE-B0755611A

PATIENT
  Age: 15 Year
  Sex: Female

DRUGS (5)
  1. DOGMATYL [Concomitant]
     Indication: BIPOLAR DISORDER
     Route: 065
     Dates: start: 20101001
  2. LAMICTAL [Suspect]
     Dosage: 25MG PER DAY
     Route: 048
     Dates: start: 20111006
  3. DEPAKENE [Concomitant]
     Indication: BIPOLAR DISORDER
     Dosage: 600MG PER DAY
     Route: 048
     Dates: start: 20101001
  4. AKINETON [Concomitant]
     Route: 065
     Dates: start: 20101001
  5. LAMICTAL [Suspect]
     Indication: BIPOLAR DISORDER
     Dosage: 25MG TWICE PER DAY
     Route: 048
     Dates: start: 20110926, end: 20111005

REACTIONS (4)
  - RASH GENERALISED [None]
  - PYREXIA [None]
  - MENINGITIS [None]
  - MULTI-ORGAN FAILURE [None]
